FAERS Safety Report 10210792 (Version 1)
Quarter: 2014Q2

REPORT INFORMATION
  Report Type: Spontaneous
  Country: US (occurrence: None)
  Receive Date: 20140530
  Receipt Date: 20140530
  Transmission Date: 20141212
  Serious: No
  Sender: FDA-Public Use
  Company Number: None

PATIENT
  Age: 18 Year
  Sex: Male
  Weight: 72.49 kg

DRUGS (1)
  1. CLONIDINE ER 0.1MG PAR PHARMACEUTICALS [Suspect]
     Indication: ATTENTION DEFICIT/HYPERACTIVITY DISORDER
     Dosage: IN PAST YEARS, 0.1MG, BID, PO
     Route: 048

REACTIONS (5)
  - Drug ineffective [None]
  - Abnormal behaviour [None]
  - Attention deficit/hyperactivity disorder [None]
  - Condition aggravated [None]
  - Product substitution issue [None]
